FAERS Safety Report 7490696-2 (Version None)
Quarter: 2011Q2

REPORT INFORMATION
  Report Type: 
  Country: None (occurrence: None)
  Receive Date: 20110519
  Receipt Date: 20110510
  Transmission Date: 20111010
  Serious: Yes (Hospitalization)
  Sender: FDA-Public Use
  Company Number: US-ASTRAZENECA-2011SE26767

PATIENT
  Age: 18834 Day
  Sex: Female

DRUGS (35)
  1. VANDETANIB [Suspect]
     Indication: THYROID CANCER
     Dosage: BLINDED THERAPY
     Route: 048
     Dates: start: 20071027, end: 20080313
  2. AMBIEN [Concomitant]
     Indication: INSOMNIA
     Route: 048
     Dates: start: 20100223
  3. LEVOXYL [Concomitant]
     Dosage: 125 DAILY
     Route: 048
     Dates: start: 20080722, end: 20081015
  4. LEVOXYL [Concomitant]
     Dosage: 112 DAILY
     Route: 048
     Dates: start: 20081016, end: 20090413
  5. LEVOXYL [Concomitant]
     Dosage: 150 DAILY
     Route: 048
     Dates: start: 20100405, end: 20100504
  6. LEVOXYL [Concomitant]
     Dosage: 112 DAILY
     Route: 048
     Dates: start: 20081016, end: 20090413
  7. KLOR-CON [Concomitant]
     Indication: MINERAL SUPPLEMENTATION
     Dosage: 60 DAILY
     Route: 048
     Dates: start: 20100505
  8. VANDETANIB [Suspect]
     Dosage: OPEN LABEL THERAPY
     Route: 048
     Dates: start: 20100420, end: 20110113
  9. LOMOTIL [Concomitant]
     Indication: DIARRHOEA
     Route: 048
     Dates: start: 20080407
  10. TINCTURE OF OPIUM [Concomitant]
     Indication: DIARRHOEA
     Route: 048
     Dates: start: 20080701
  11. LEVOXYL [Concomitant]
     Dosage: 125 DAILY
     Route: 048
     Dates: start: 20080722, end: 20081015
  12. LEVOXYL [Concomitant]
     Dosage: 250 DAILY
     Route: 048
     Dates: start: 20100324, end: 20100324
  13. LEVOXYL [Concomitant]
     Dosage: 150 DAILY
     Route: 048
     Dates: start: 20100405, end: 20100504
  14. VANDETANIB [Suspect]
     Dosage: BLINDED THERAPY
     Route: 048
     Dates: start: 20080426, end: 20100120
  15. VANDETANIB [Suspect]
     Dosage: OPEN LABEL THERAPY
     Route: 048
     Dates: start: 20100209, end: 20100405
  16. VANDETANIB [Suspect]
     Dosage: OPEN LABEL THERAPY
     Route: 048
     Dates: start: 20110129, end: 20110503
  17. NEXIUM [Concomitant]
     Indication: GASTROOESOPHAGEAL REFLUX DISEASE
     Dosage: 40 DAILY
     Route: 048
     Dates: start: 20080702
  18. ERGOCALCIFEROL [Concomitant]
     Indication: VITAMIN SUPPLEMENTATION
     Dosage: 50000 DAILY
     Route: 048
     Dates: start: 20100406
  19. MAGNESIUM [Concomitant]
     Indication: MINERAL SUPPLEMENTATION
     Dosage: 1200 DAILY
     Route: 048
     Dates: start: 20100409
  20. LEVOXYL [Concomitant]
     Dosage: 250 DAILY
     Route: 048
     Dates: start: 20100324, end: 20100324
  21. LEVOXYL [Concomitant]
     Dosage: 160 DAILY
     Route: 048
     Dates: start: 20100505
  22. ALPRAZOLAM [Concomitant]
     Indication: ANXIETY
     Route: 048
     Dates: start: 20100505
  23. ACETAMINOPHEN [Concomitant]
     Indication: HEADACHE
     Route: 048
  24. LEVOXYL [Concomitant]
     Indication: THYROXINE THERAPY
     Dosage: 137 DAILY
     Route: 048
     Dates: end: 20080721
  25. AZELEZ [Concomitant]
     Indication: PHOTOSENSITIVITY REACTION
     Route: 061
     Dates: start: 20101020
  26. ACETAMINOPHEN [Concomitant]
     Indication: PAIN IN EXTREMITY
     Route: 048
  27. ACETAMINOPHEN [Concomitant]
     Indication: TOOTHACHE
     Route: 048
  28. LEVOXYL [Concomitant]
     Indication: HYPOTHYROIDISM
     Dosage: 137 DAILY
     Route: 048
     Dates: end: 20080721
  29. VANDETANIB [Suspect]
     Dosage: BLINDED THERAPY
     Route: 048
     Dates: start: 20080324, end: 20080410
  30. LEVOXYL [Concomitant]
     Dosage: 125 DAILY
     Route: 048
     Dates: start: 20090414, end: 20100404
  31. ALPRAZOLAM [Concomitant]
     Indication: MOOD ALTERED
     Route: 048
     Dates: start: 20100505
  32. ALKA-SELTZER (INGREDIENTS UNKNOWN) [Concomitant]
     Indication: PAIN PROPHYLAXIS
     Route: 048
     Dates: start: 20080922
  33. LEVOXYL [Concomitant]
     Dosage: 125 DAILY
     Route: 048
     Dates: start: 20090414, end: 20100404
  34. LEVOXYL [Concomitant]
     Dosage: 160 DAILY
     Route: 048
     Dates: start: 20100505
  35. METROGEL [Concomitant]
     Indication: PHOTOSENSITIVITY REACTION
     Route: 061
     Dates: start: 20101020

REACTIONS (2)
  - NAUSEA [None]
  - DIZZINESS [None]
